FAERS Safety Report 12204205 (Version 1)
Quarter: 2016Q1

REPORT INFORMATION
  Report Type: Spontaneous
  Country: US (occurrence: None)
  Receive Date: 20160322
  Receipt Date: 20160322
  Transmission Date: 20160526
  Serious: No
  Sender: FDA-Public Use
  Company Number: None

PATIENT
  Age: 22 Year
  Sex: Female
  Weight: 62.6 kg

DRUGS (1)
  1. ACETAMINOFEN [Suspect]
     Active Substance: ACETAMINOPHEN
     Indication: PYREXIA
     Dosage: 1 PASTILLA AT BEDTIME TAKEN BY MOUTH
     Route: 048

REACTIONS (3)
  - Rash erythematous [None]
  - Pruritus generalised [None]
  - Pruritus [None]

NARRATIVE: CASE EVENT DATE: 20160317
